FAERS Safety Report 9893160 (Version 1)
Quarter: 2014Q1

REPORT INFORMATION
  Report Type: Spontaneous
  Country: US (occurrence: US)
  Receive Date: 20140213
  Receipt Date: 20140213
  Transmission Date: 20141002
  Serious: Yes (Other)
  Sender: FDA-Public Use
  Company Number: US-AMGEN-USASP2014009765

PATIENT
  Age: 61 Year
  Sex: Male
  Weight: 89.8 kg

DRUGS (1)
  1. ENBREL [Suspect]
     Indication: RHEUMATOID ARTHRITIS
     Dosage: UNK
     Route: 058

REACTIONS (4)
  - Abasia [Unknown]
  - Bronchitis [Unknown]
  - Pain [Unknown]
  - Musculoskeletal stiffness [Unknown]
